FAERS Safety Report 6039952-5 (Version None)
Quarter: 2009Q1

REPORT INFORMATION
  Report Type: 
  Country: None (occurrence: None)
  Receive Date: 20090116
  Receipt Date: 20071031
  Transmission Date: 20090719
  Serious: No
  Sender: FDA-Public Use
  Company Number: US-BRISTOL-MYERS SQUIBB COMPANY-13965207

PATIENT
  Age: 75 Year
  Sex: Female
  Weight: 68 kg

DRUGS (7)
  1. ABILIFY [Suspect]
     Indication: SCHIZOPHRENIA
     Dosage: PRESCRIBED DOSE TWICE DAILY
     Route: 048
     Dates: start: 20071019
  2. ABILIFY [Suspect]
     Indication: AGGRESSION
     Dosage: PRESCRIBED DOSE TWICE DAILY
     Route: 048
     Dates: start: 20071019
  3. PLAVIX [Concomitant]
     Route: 048
     Dates: start: 20071001
  4. HALOPERIDOL [Concomitant]
  5. SYNTHROID [Concomitant]
  6. FUROSEMIDE [Concomitant]
  7. LORAZEPAM [Concomitant]
     Dosage: AS NEEDED USED ABOUT ONCE MONTHLY

REACTIONS (1)
  - AGGRESSION [None]
